FAERS Safety Report 13109240 (Version 1)
Quarter: 2017Q1

REPORT INFORMATION
  Report Type: Report from Study
  Country: IT (occurrence: IT)
  Receive Date: 20170112
  Receipt Date: 20170112
  Transmission Date: 20170428
  Serious: Yes (Death)
  Sender: FDA-Public Use
  Company Number: IT-TEVA-728413ACC

PATIENT
  Age: 56 Year

DRUGS (2)
  1. TOPOTECAN TEVA PHARMACEUTICALS USA [Suspect]
     Active Substance: TOPOTECAN HYDROCHLORIDE
     Indication: SMALL CELL LUNG CANCER
     Route: 042
  2. GEMCITABINA CLORIDRATO [Suspect]
     Active Substance: GEMCITABINE HYDROCHLORIDE
     Indication: SMALL CELL LUNG CANCER
     Route: 042

REACTIONS (1)
  - Toxicity to various agents [Fatal]
